FAERS Safety Report 8046931-5 (Version None)
Quarter: 2012Q1

REPORT INFORMATION
  Report Type: 
  Country: None (occurrence: None)
  Receive Date: 20120116
  Receipt Date: 20120109
  Transmission Date: 20120608
  Serious: Yes (Hospitalization)
  Sender: FDA-Public Use
  Company Number: US-AMGEN-USASP2011068024

PATIENT
  Age: 64 Year
  Sex: Female
  Weight: 100.68 kg

DRUGS (10)
  1. SYNTHROID [Concomitant]
     Dosage: 12.5 MG, QD
     Route: 048
  2. DICYCLOMINE [Concomitant]
     Dosage: 20 MG, TID
  3. CLONIDINE [Concomitant]
     Dosage: 0.2 MG, QD
  4. AMBIEN [Concomitant]
     Dosage: 10 MG, QD (HS)
  5. ASPIRIN [Concomitant]
     Dosage: 325 MG, QD
  6. IBUPROFEN [Concomitant]
     Dosage: UNK, PRN
  7. COREX [Concomitant]
     Dosage: 3.25 MG, BID
  8. ENBREL [Suspect]
     Indication: PSORIASIS
     Dosage: 50 MG, QWK
     Route: 058
     Dates: start: 20110808
  9. BEZALIP [Concomitant]
     Dosage: 1 MG, TID
     Route: 048
  10. PAXIL [Concomitant]
     Dosage: 20 MG, QD
     Route: 048

REACTIONS (5)
  - BREAST TENDERNESS [None]
  - CORONARY ARTERY BYPASS [None]
  - COUGH [None]
  - CONSTIPATION [None]
  - BREAST PAIN [None]
